FAERS Safety Report 7479424-4 (Version None)
Quarter: 2011Q2

REPORT INFORMATION
  Report Type: 
  Country: None (occurrence: None)
  Receive Date: 20110513
  Receipt Date: 20110502
  Transmission Date: 20111010
  Serious: Yes (Hospitalization, Other)
  Sender: FDA-Public Use
  Company Number: TW-ELI_LILLY_AND_COMPANY-TW201105001036

PATIENT
  Age: 42 Year
  Sex: Male

DRUGS (11)
  1. RISPERIDONE [Concomitant]
     Dosage: 4 MG, QD
  2. FLUOXETINE HYDROCHLORIDE [Suspect]
     Dosage: 80 MG, QD
  3. ARIPIPRAZOLE [Concomitant]
     Dosage: 10 MG, QD
  4. QUETIAPINE [Concomitant]
     Dosage: 800 MG, QD
  5. ARIPIPRAZOLE [Concomitant]
     Dosage: 15 MG, QD
  6. ARIPIPRAZOLE [Concomitant]
     Dosage: 10 MG, QD
  7. QUETIAPINE [Concomitant]
     Dosage: 600 MG, QD
  8. RISPERIDONE [Concomitant]
     Indication: PSYCHOTIC DISORDER
     Dosage: 2 MG, QD
  9. FLUOXETINE HYDROCHLORIDE [Suspect]
     Indication: OBSESSIVE-COMPULSIVE DISORDER
     Dosage: 60 MG, QD
  10. ARIPIPRAZOLE [Concomitant]
     Indication: PSYCHOTIC DISORDER
     Dosage: 10 MG, QD
  11. ARIPIPRAZOLE [Concomitant]
     Dosage: 20 MG, QD

REACTIONS (7)
  - INTENTIONAL DRUG MISUSE [None]
  - PSYCHIATRIC SYMPTOM [None]
  - OBSESSIVE-COMPULSIVE PERSONALITY DISORDER [None]
  - LEUKOPENIA [None]
  - NEUTROPENIA [None]
  - HALLUCINATION, AUDITORY [None]
  - DRUG INTERACTION [None]
